FAERS Safety Report 24525672 (Version 2)
Quarter: 2024Q4

REPORT INFORMATION
  Report Type: Spontaneous
  Country: US (occurrence: US)
  Receive Date: 20241020
  Receipt Date: 20241122
  Transmission Date: 20250115
  Serious: Yes (Other)
  Sender: BRISTOL-MYERS SQUIBB COMPANY
  Company Number: US-BRISTOL-MYERS SQUIBB COMPANY-2024-164204

PATIENT
  Age: 37 Year
  Sex: Male
  Weight: 84.82 kg

DRUGS (1)
  1. REVLIMID [Suspect]
     Active Substance: LENALIDOMIDE
     Indication: Plasma cell myeloma
     Dosage: 2 WEEKS ON , 1 WEEK OFF
     Route: 048
     Dates: start: 20240901

REACTIONS (7)
  - Fatigue [Unknown]
  - Off label use [Unknown]
  - Blood creatine increased [Recovering/Resolving]
  - Red blood cell count decreased [Recovering/Resolving]
  - Peripheral swelling [Recovering/Resolving]
  - Pleural effusion [Recovering/Resolving]
  - Pericardial effusion [Recovering/Resolving]
